FAERS Safety Report 10048688 (Version 1)
Quarter: 2014Q1

REPORT INFORMATION
  Report Type: Spontaneous
  Country: US (occurrence: US)
  Receive Date: 20140331
  Receipt Date: 20140331
  Transmission Date: 20141002
  Serious: No
  Sender: FDA-Public Use
  Company Number: US-TEVA-471726USA

PATIENT
  Age: 74 Year
  Sex: Male
  Weight: 69.92 kg

DRUGS (4)
  1. PROAIR HFA [Suspect]
     Indication: ASTHMA
     Dosage: 3-4 TIMES DAILY OR MORE
  2. PROAIR HFA [Suspect]
     Indication: BRONCHITIS
  3. LOSARTAN POTASSIUM [Suspect]
  4. SYMBICORT [Concomitant]
     Dosage: 1 INHALATION QHS

REACTIONS (6)
  - Wheezing [Not Recovered/Not Resolved]
  - Dyspnoea [Not Recovered/Not Resolved]
  - Mobility decreased [Not Recovered/Not Resolved]
  - Respiratory disorder [Not Recovered/Not Resolved]
  - Blood pressure increased [Not Recovered/Not Resolved]
  - Cough [Not Recovered/Not Resolved]
